FAERS Safety Report 9436886 (Version 1)
Quarter: 2013Q3

REPORT INFORMATION
  Report Type: Spontaneous
  Country: US (occurrence: US)
  Receive Date: 20130802
  Receipt Date: 20130802
  Transmission Date: 20140515
  Serious: Yes (Congenital Anomaly, Other)
  Sender: FDA-Public Use
  Company Number: US-JNJFOC-20130306514

PATIENT
  Sex: Female

DRUGS (7)
  1. TOPAMAX [Suspect]
     Indication: MIGRAINE
     Route: 064
  2. DARVOCET [Suspect]
     Indication: MIGRAINE
     Route: 064
  3. DARVOCET [Suspect]
     Indication: MIGRAINE
     Route: 064
  4. ALLEGRA-D [Suspect]
     Indication: MULTIPLE ALLERGIES
     Route: 065
  5. VITAMINS NOS [Concomitant]
     Route: 064
  6. VITAMIN B-12 [Concomitant]
     Route: 064
  7. VITAMIN B [Concomitant]
     Route: 064

REACTIONS (3)
  - Atrial septal defect [Recovering/Resolving]
  - Ventricular septal defect [Recovering/Resolving]
  - Foetal exposure during pregnancy [Recovered/Resolved]
